FAERS Safety Report 5341660-0 (Version None)
Quarter: 2007Q2

REPORT INFORMATION
  Report Type: 
  Country: None (occurrence: None)
  Receive Date: 20070601
  Receipt Date: 20070530
  Transmission Date: 20071010
  Serious: Yes (Life-Threatening, Other)
  Sender: FDA-Public Use
  Company Number: PR-BRISTOL-MYERS SQUIBB COMPANY-13798459

PATIENT
  Age: 73 Year
  Sex: Male

DRUGS (1)
  1. DEFINITY [Suspect]
     Indication: ECHOCARDIOGRAM
     Dosage: DEFINITY 1.5 ML DILUTED IN 8.5 CC OF NORMAL SALINE
     Route: 042
     Dates: start: 20070530

REACTIONS (3)
  - ABDOMINAL PAIN [None]
  - DYSPNOEA [None]
  - PULMONARY OEDEMA [None]
